FAERS Safety Report 4345921-3 (Version None)
Quarter: 2004Q1

REPORT INFORMATION
  Report Type: 
  Country: None (occurrence: None)
  Receive Date: 20040325
  Receipt Date: 20031209
  Transmission Date: 20041129
  Serious: No
  Sender: FDA-Public Use
  Company Number: USA031254314

PATIENT
  Age: 64 Year
  Sex: Female
  Weight: 80 kg

DRUGS (5)
  1. FORTEO [Suspect]
     Indication: OSTEOPOROSIS
     Dates: start: 20031119
  2. DITROPAN [Concomitant]
  3. CALCIUM WITH VITAMIN D [Concomitant]
  4. ASACOL [Concomitant]
  5. FOSAMAX [Concomitant]

REACTIONS (2)
  - PAIN EXACERBATED [None]
  - POSTURE ABNORMAL [None]
